FAERS Safety Report 5072709-0 (Version None)
Quarter: 2006Q3

REPORT INFORMATION
  Report Type: 
  Country: None (occurrence: None)
  Receive Date: 20060801
  Receipt Date: 20060718
  Transmission Date: 20061208
  Serious: Yes (Hospitalization)
  Sender: FDA-Public Use
  Company Number: 2006BH011762

PATIENT
  Age: 46 Year
  Sex: Female

DRUGS (4)
  1. DEXAMETHASONE [Suspect]
     Indication: PREMEDICATION
  2. CYTOXAN [Suspect]
     Indication: BREAST CANCER
     Dates: end: 20060401
  3. ADRIAMYCIN PFS [Suspect]
     Indication: BREAST CANCER
     Dates: end: 20060401
  4. TAXOTERE [Suspect]
     Indication: BREAST CANCER
     Dates: end: 20060401

REACTIONS (11)
  - CARDIAC TAMPONADE [None]
  - CHRONIC MYELOMONOCYTIC LEUKAEMIA [None]
  - DIFFICULT TO WEAN FROM VENTILATOR [None]
  - DYSPNOEA [None]
  - OEDEMA [None]
  - PERICARDIAL EFFUSION [None]
  - PLEURAL EFFUSION [None]
  - TREATMENT NONCOMPLIANCE [None]
  - TREATMENT RELATED SECONDARY MALIGNANCY [None]
  - WEIGHT INCREASED [None]
  - WHITE BLOOD CELL COUNT INCREASED [None]
